FAERS Safety Report 6066524-9 (Version None)
Quarter: 2009Q1

REPORT INFORMATION
  Report Type: 
  Country: None (occurrence: None)
  Receive Date: 20090203
  Receipt Date: 20090119
  Transmission Date: 20090719
  Serious: Yes (Other)
  Sender: FDA-Public Use
  Company Number: 230362K09USA

PATIENT
  Age: 64 Year
  Sex: Female
  Weight: 104 kg

DRUGS (5)
  1. REBIF [Suspect]
     Indication: MULTIPLE SCLEROSIS
     Dosage: 44 MCG, 3 IN 1 WEEKS, SUBCUTANEOUS
     Route: 058
     Dates: start: 20081209
  2. UNSPECIFIED MEDICATION FOR DIABETES (ALL OTHER THERAPEUTIC PRODUCTS) [Concomitant]
  3. UNSPECIFIED MEDICATION FOR THYROID DISORDER (ALL OTHER THERAPEUTIC PRO [Concomitant]
  4. UNSPECIFIED MEDICATION FOR DEPRESSION (ALL OTHER NON-THERAPEUTIC PRODU [Concomitant]
  5. UNSPECIFED MEDICATION FOR HIGH BLOOD PRESSURE (ALL OTHER THERAPEUTIC P [Concomitant]

REACTIONS (3)
  - FACIAL BONES FRACTURE [None]
  - FALL [None]
  - PAIN [None]
